FAERS Safety Report 8100599-8 (Version None)
Quarter: 2012Q1

REPORT INFORMATION
  Report Type: 
  Country: None (occurrence: None)
  Receive Date: 20120129
  Receipt Date: 20111125
  Transmission Date: 20120608
  Serious: No
  Sender: FDA-Public Use
  Company Number: US-ABBOTT-11P-163-0878037-00

PATIENT
  Age: 30 Year
  Sex: Female

DRUGS (2)
  1. HUMIRA [Suspect]
     Indication: CROHN'S DISEASE
  2. PROMETHAZINE [Concomitant]
     Indication: MALAISE
     Dosage: 20 OR 25 MG HALF A TABLET, PRN
     Route: 048

REACTIONS (8)
  - RHINORRHOEA [None]
  - PAIN IN EXTREMITY [None]
  - NASAL CONGESTION [None]
  - MALAISE [None]
  - INCREASED UPPER AIRWAY SECRETION [None]
  - UPPER-AIRWAY COUGH SYNDROME [None]
  - NAUSEA [None]
  - DECREASED APPETITE [None]
